FAERS Safety Report 5282542-2 (Version None)
Quarter: 2007Q1

REPORT INFORMATION
  Report Type: 
  Country: None (occurrence: None)
  Receive Date: 20070326
  Receipt Date: 20070315
  Transmission Date: 20070707
  Serious: Yes (Hospitalization, Other)
  Sender: FDA-Public Use
  Company Number: 163-21880-07010006

PATIENT
  Age: 71 Year
  Sex: Male

DRUGS (15)
  1. REVLIMID [Suspect]
     Indication: MYELODYSPLASTIC SYNDROME
     Dosage: SEE IMAGE
     Route: 048
     Dates: start: 20061220, end: 20070103
  2. REVLIMID [Suspect]
     Indication: MYELODYSPLASTIC SYNDROME
     Dosage: SEE IMAGE
     Route: 048
     Dates: start: 20061115, end: 20070110
  3. REVLIMID [Suspect]
     Indication: MYELODYSPLASTIC SYNDROME
     Dosage: SEE IMAGE
     Route: 048
     Dates: start: 20070131
  4. REVLIMID [Suspect]
     Indication: MYELODYSPLASTIC SYNDROME
     Dosage: SEE IMAGE
     Route: 048
     Dates: start: 20070314
  5. VITAMIN B6 [Concomitant]
  6. COUMADIN [Concomitant]
  7. TOPROL-XL [Concomitant]
  8. HYZAAR [Concomitant]
  9. PROCRIT [Concomitant]
  10. ACIPHEX [Concomitant]
  11. BACTRIM [Concomitant]
  12. ZOLOFT [Concomitant]
  13. PLATIL (CISPLATIN) [Concomitant]
  14. CRESTON (ROSUVASTATIN CALCIUM) [Concomitant]
  15. AMBIEN [Concomitant]

REACTIONS (5)
  - ATRIOVENTRICULAR BLOCK FIRST DEGREE [None]
  - FUNGAL RASH [None]
  - HYPOTENSION [None]
  - POOR PERIPHERAL CIRCULATION [None]
  - SYNCOPE [None]
